FAERS Safety Report 7338179-4 (Version None)
Quarter: 2011Q1

REPORT INFORMATION
  Report Type: 
  Country: None (occurrence: None)
  Receive Date: 20110303
  Receipt Date: 20110303
  Transmission Date: 20110831
  Serious: No
  Sender: FDA-Public Use
  Company Number: None

PATIENT
  Age: 58 Year
  Sex: Female
  Weight: 70.3075 kg

DRUGS (1)
  1. RITUXIMAB [Suspect]
     Indication: LYMPHOMA
     Dosage: 635MG MONTHLY IV DRIP
     Route: 041
     Dates: start: 20110224, end: 20110224

REACTIONS (3)
  - INFUSION RELATED REACTION [None]
  - THROAT IRRITATION [None]
  - EAR PRURITUS [None]
